FAERS Safety Report 8461905-8 (Version None)
Quarter: 2012Q2

REPORT INFORMATION
  Report Type: 
  Country: None (occurrence: None)
  Receive Date: 20120323
  Receipt Date: 20111103
  Transmission Date: 20120825
  Serious: Yes (Other)
  Sender: FDA-Public Use
  Company Number: 163-21880-11093119

PATIENT
  Age: 62 Year
  Sex: Male
  Weight: 159.2126 kg

DRUGS (11)
  1. LENALIDOMIDE [Suspect]
     Indication: MULTIPLE MYELOMA
     Dosage: 15 MG, QD X 21 DAYS, PO
     Route: 048
     Dates: start: 20080101
  2. SPIRIVA [Concomitant]
  3. ASTELIN [Concomitant]
  4. LISINOPRIL [Concomitant]
  5. POTASSIUM CHLORIDE [Concomitant]
  6. DEXAMETHASONE [Concomitant]
  7. EPIPEN [Concomitant]
  8. NASONEX [Concomitant]
  9. PRO-AIR (PROCATEROL HYDROCHLORIDE) [Concomitant]
  10. LASIX [Concomitant]
  11. SINGULAIR [Concomitant]

REACTIONS (3)
  - BLOOD POTASSIUM DECREASED [None]
  - MUSCLE SPASMS [None]
  - CONTUSION [None]
